FAERS Safety Report 6779381-X (Version None)
Quarter: 2010Q2

REPORT INFORMATION
  Report Type: 
  Country: None (occurrence: None)
  Receive Date: 20100618
  Receipt Date: 20100607
  Transmission Date: 20101027
  Serious: Yes (Other)
  Sender: FDA-Public Use
  Company Number: DE-JNJFOC-20100209844

PATIENT
  Age: 61 Year
  Sex: Female

DRUGS (4)
  1. REMICADE [Suspect]
     Indication: RHEUMATOID ARTHRITIS
     Route: 042
     Dates: start: 20071001, end: 20090526
  2. METHOTREXATE [Concomitant]
     Indication: RHEUMATOID ARTHRITIS
  3. IBANDRONATE SODIUM [Concomitant]
     Indication: OSTEOPOROSIS
  4. GLUCOCORTICOIDS [Concomitant]

REACTIONS (4)
  - EMPHYSEMA [None]
  - HYPERTENSION [None]
  - HYPERTHYROIDISM [None]
  - RETINAL DETACHMENT [None]
